FAERS Safety Report 8859425 (Version 1)
Quarter: 2012Q4

REPORT INFORMATION
  Report Type: Spontaneous
  Country: DE (occurrence: None)
  Receive Date: 20121023
  Receipt Date: 20121023
  Transmission Date: 20130627
  Serious: Yes (Other)
  Sender: FDA-Public Use
  Company Number: AUR-APL-2012-04508

PATIENT
  Age: 56 Year
  Sex: Male

DRUGS (1)
  1. BISOPROLOL [Suspect]
     Indication: HYPERTENSION  ARTERIAL
     Route: 048
     Dates: start: 2006

REACTIONS (4)
  - Dry eye [None]
  - Foreign body sensation in eyes [None]
  - Eye irritation [None]
  - Eye pruritus [None]
